FAERS Safety Report 15398459 (Version 2)
Quarter: 2018Q4

REPORT INFORMATION
  Report Type: Spontaneous
  Country: US (occurrence: US)
  Receive Date: 20180918
  Receipt Date: 20181004
  Transmission Date: 20190204
  Serious: No
  Sender: FDA-Public Use
  Company Number: US-ACTELION-A-NJ2018-178998

PATIENT
  Age: 71 Year
  Sex: Female

DRUGS (7)
  1. AMBRISENTAN [Suspect]
     Active Substance: AMBRISENTAN
     Indication: PULMONARY ARTERIAL HYPERTENSION
     Dosage: 10 MG, QD
     Route: 065
     Dates: start: 20171213
  2. ADCIRCA [Suspect]
     Active Substance: TADALAFIL
     Indication: PRODUCT USED FOR UNKNOWN INDICATION
     Dosage: UNK
     Route: 065
     Dates: start: 201712
  3. ADCIRCA [Suspect]
     Active Substance: TADALAFIL
     Dosage: 20 MG, UNK
     Route: 065
     Dates: start: 20171213
  4. OXYCODONE [Concomitant]
     Active Substance: OXYCODONE
  5. UPTRAVI [Suspect]
     Active Substance: SELEXIPAG
     Indication: PULMONARY ARTERIAL HYPERTENSION
     Dosage: UNK
     Route: 048
     Dates: start: 20180411
  6. FUROSEMIDE. [Concomitant]
     Active Substance: FUROSEMIDE
  7. TRACLEER [Suspect]
     Active Substance: BOSENTAN
     Indication: PULMONARY ARTERIAL HYPERTENSION
     Route: 048

REACTIONS (8)
  - Myalgia [Unknown]
  - Abdominal distension [Not Recovered/Not Resolved]
  - Back disorder [Not Recovered/Not Resolved]
  - Influenza [Unknown]
  - Peripheral swelling [Unknown]
  - Abdominal pain upper [Unknown]
  - Diarrhoea [Unknown]
  - Induration [Not Recovered/Not Resolved]

NARRATIVE: CASE EVENT DATE: 20180201
